FAERS Safety Report 25275233 (Version 1)
Quarter: 2025Q2

REPORT INFORMATION
  Report Type: Spontaneous
  Country: CN (occurrence: CN)
  Receive Date: 20250506
  Receipt Date: 20250506
  Transmission Date: 20250716
  Serious: Yes (Life-Threatening)
  Sender: GE HEALTHCARE
  Company Number: None

PATIENT
  Age: 68 Year
  Sex: Male
  Weight: 75 kg

DRUGS (2)
  1. OMNIPAQUE [Suspect]
     Active Substance: IOHEXOL
     Indication: Venogram
     Route: 041
     Dates: start: 20250427, end: 20250427
  2. OMNIPAQUE [Suspect]
     Active Substance: IOHEXOL
     Indication: Angiogram

REACTIONS (8)
  - Livedo reticularis [Recovering/Resolving]
  - Anaphylactic shock [Recovering/Resolving]
  - Chest discomfort [Recovering/Resolving]
  - Cyanosis [Recovering/Resolving]
  - Flushing [Recovering/Resolving]
  - Rash [Recovering/Resolving]
  - Pruritus [Recovering/Resolving]
  - Cold sweat [Recovering/Resolving]

NARRATIVE: CASE EVENT DATE: 20250427
